FAERS Safety Report 7401035-7 (Version None)
Quarter: 2011Q2

REPORT INFORMATION
  Report Type: 
  Country: None (occurrence: None)
  Receive Date: 20110407
  Receipt Date: 20110404
  Transmission Date: 20111010
  Serious: Yes (Other)
  Sender: FDA-Public Use
  Company Number: BR-ABBOTT-11P-020-0716575-00

PATIENT
  Sex: Female

DRUGS (4)
  1. HUMIRA [Suspect]
     Indication: RHEUMATOID ARTHRITIS
     Route: 058
     Dates: start: 20100101
  2. AMITRIPTYLINE [Suspect]
     Indication: DEPRESSION
     Dosage: ONCE IN 24 HOURS, SPORADICALLY
     Route: 048
  3. METHOTREXATE [Concomitant]
     Indication: RHEUMATOID ARTHRITIS
     Route: 048
  4. AMITRIPTYLINE [Suspect]
     Dosage: SPORADICALLY

REACTIONS (9)
  - DYSPNOEA [None]
  - STRESS [None]
  - HEADACHE [None]
  - INJECTION SITE PAIN [None]
  - DELIRIUM [None]
  - HYPERTENSION [None]
  - OEDEMA PERIPHERAL [None]
  - JOINT SWELLING [None]
  - VISUAL IMPAIRMENT [None]
